FAERS Safety Report 12467447 (Version 1)
Quarter: 2016Q2

REPORT INFORMATION
  Report Type: Spontaneous
  Country: US (occurrence: US)
  Receive Date: 20160615
  Receipt Date: 20160615
  Transmission Date: 20160815
  Serious: No
  Sender: FDA-Public Use
  Company Number: US-TEVA-654307USA

PATIENT
  Age: 76 Year
  Sex: Male
  Weight: 76.27 kg

DRUGS (1)
  1. CIPROFLOXACIN. [Suspect]
     Active Substance: CIPROFLOXACIN
     Indication: CYSTITIS
     Dosage: 1000 MILLIGRAM DAILY;
     Route: 065
     Dates: start: 20160408, end: 20160418

REACTIONS (6)
  - Gingival pain [Unknown]
  - Nausea [Recovered/Resolved]
  - Muscle strain [Unknown]
  - Dizziness [Recovered/Resolved]
  - Groin pain [Unknown]
  - Fatigue [Recovered/Resolved]

NARRATIVE: CASE EVENT DATE: 201604
